FAERS Safety Report 11500752 (Version 1)
Quarter: 2015Q3

REPORT INFORMATION
  Report Type: Spontaneous
  Country: US (occurrence: None)
  Receive Date: 20150911
  Receipt Date: 20150911
  Transmission Date: 20151125
  Serious: Yes (Hospitalization, Other)
  Sender: FDA-Public Use
  Company Number: None

PATIENT
  Age: 75 Year
  Sex: Male
  Weight: 86.18 kg

DRUGS (15)
  1. METROLOL ER SUCCINATE [Concomitant]
  2. ADVIL [Concomitant]
     Active Substance: IBUPROFEN
  3. JANUVIA [Concomitant]
     Active Substance: SITAGLIPTIN PHOSPHATE
  4. ULORIC [Concomitant]
     Active Substance: FEBUXOSTAT
  5. LIPITOR [Concomitant]
     Active Substance: ATORVASTATIN CALCIUM
  6. LOW DOSE ASPIRIN [Concomitant]
     Active Substance: ASPIRIN
  7. ZOLPIDEM [Suspect]
     Active Substance: ZOLPIDEM\ZOLPIDEM TARTRATE
     Indication: SLEEP DISORDER
     Dosage: 1 PILL AS NEEDED
     Route: 048
     Dates: start: 20150602, end: 20150602
  8. VIAGRA [Concomitant]
     Active Substance: SILDENAFIL CITRATE
  9. CENTRUM SILVER [Concomitant]
     Active Substance: VITAMINS
  10. OMEPRAZOLE. [Concomitant]
     Active Substance: OMEPRAZOLE
  11. AMLODIPINE BENAZIPRIL [Concomitant]
  12. METFORMIN [Concomitant]
     Active Substance: METFORMIN HYDROCHLORIDE
  13. VITAMIN D [Concomitant]
     Active Substance: CHOLECALCIFEROL
  14. DICLOFENAC SODIUM. [Concomitant]
     Active Substance: DICLOFENAC SODIUM
  15. ZYRTEC [Concomitant]
     Active Substance: CETIRIZINE HYDROCHLORIDE

REACTIONS (3)
  - Amnesia [None]
  - Abnormal behaviour [None]
  - Transient ischaemic attack [None]

NARRATIVE: CASE EVENT DATE: 20150602
